FAERS Safety Report 24651691 (Version 4)
Quarter: 2025Q3

REPORT INFORMATION
  Report Type: Report from Study
  Country: CA (occurrence: CA)
  Receive Date: 20241122
  Receipt Date: 20250707
  Transmission Date: 20251020
  Serious: Yes (Other)
  Sender: CELLTRION
  Company Number: CA-CELLTRION INC.-2024CA021427

PATIENT

DRUGS (14)
  1. ADALIMUMAB-AATY [Suspect]
     Active Substance: ADALIMUMAB-AATY
     Indication: Crohn^s disease
     Route: 058
     Dates: start: 20240901
  2. ADALIMUMAB-AATY [Suspect]
     Active Substance: ADALIMUMAB-AATY
     Dosage: 40 MG, Q2WEEKS
     Route: 058
     Dates: start: 20241117
  3. ADALIMUMAB-AATY [Suspect]
     Active Substance: ADALIMUMAB-AATY
     Dosage: 40 MG, EVERY 7 DAYS/SC 40MG EVERY Q7 DAYS
     Route: 058
  4. ADALIMUMAB-AATY [Suspect]
     Active Substance: ADALIMUMAB-AATY
     Dosage: 40.0 MILLIGRAM, 1 EVERY 1 WEEK
     Route: 058
  5. SKYRIZI [Concomitant]
     Active Substance: RISANKIZUMAB-RZAA
     Route: 042
     Dates: start: 20240509
  6. SKYRIZI [Concomitant]
     Active Substance: RISANKIZUMAB-RZAA
     Route: 058
     Dates: start: 20240801
  7. PREDNISONE [Concomitant]
     Active Substance: PREDNISONE
     Dates: start: 202405
  8. PREDNISONE [Concomitant]
     Active Substance: PREDNISONE
     Dosage: 40 MG, Q2WEEKS (INCREASED FROM 10MG TO 40MG DIE X 2 WEEKS FROM 07-19-2024)
     Dates: start: 20240719
  9. PREDNISONE [Concomitant]
     Active Substance: PREDNISONE
     Dosage: DECREASE BY 5MG Q WK
  10. PREDNISONE [Concomitant]
     Active Substance: PREDNISONE
  11. MONOFERRIC [Concomitant]
     Active Substance: FERRIC DERISOMALTOSE
     Route: 042
     Dates: start: 20240729
  12. PANTO [PANTHENOL] [Concomitant]
     Active Substance: PANTHENOL
     Route: 048
  13. BUDESONIDE [Concomitant]
     Active Substance: BUDESONIDE
     Route: 048
  14. PREDNISONE [Concomitant]
     Active Substance: PREDNISONE

REACTIONS (7)
  - Faecal calprotectin increased [Not Recovered/Not Resolved]
  - Intestinal obstruction [Not Recovered/Not Resolved]
  - Fatigue [Not Recovered/Not Resolved]
  - Expired product administered [Not Recovered/Not Resolved]
  - Product dose omission issue [Unknown]
  - Therapeutic product effect incomplete [Not Recovered/Not Resolved]
  - Product supply issue [Unknown]

NARRATIVE: CASE EVENT DATE: 20240901
